FAERS Safety Report 4340758-3 (Version None)
Quarter: 2004Q2

REPORT INFORMATION
  Report Type: 
  Country: None (occurrence: None)
  Receive Date: 20040414
  Receipt Date: 20040326
  Transmission Date: 20050107
  Serious: Yes (Hospitalization)
  Sender: FDA-Public Use
  Company Number: N133896

PATIENT
  Age: 53 Year
  Sex: Female

DRUGS (6)
  1. (OXALIPLATIN) - SOLUTION - 100 MG/M2 [Suspect]
     Indication: COLORECTAL CANCER METASTATIC
     Dosage: 134.21 MG OTHER INTRAVENOUS NOS
     Route: 042
     Dates: start: 20011212, end: 20011212
  2. (OXALIPLATIN) - SOLUTION - 100 MG/M2 [Suspect]
     Indication: DISEASE RECURRENCE
     Dosage: 134.21 MG OTHER INTRAVENOUS NOS
     Route: 042
     Dates: start: 20011212, end: 20011212
  3. (FLUOROURACIL) - SOLUTION - MG/M2 [Suspect]
     Indication: COLORECTAL CANCER METASTATIC
     Dosage: 4796.75 MG OTHER INTRAVENOUS NOS
     Route: 042
     Dates: start: 20011212, end: 20011212
  4. (FLUOROURACIL) - SOLUTION - MG/M2 [Suspect]
     Indication: DISEASE RECURRENCE
     Dosage: 4796.75 MG OTHER INTRAVENOUS NOS
     Route: 042
     Dates: start: 20011212, end: 20011212
  5. LEUCOVORIN CALCIUM [Suspect]
     Indication: COLORECTAL CANCER METASTATIC
     Dosage: 1694.23 MG OTHER INTRAVENOUS NOS
     Route: 042
     Dates: start: 20011212, end: 20011212
  6. LEUCOVORIN CALCIUM [Suspect]
     Indication: DISEASE RECURRENCE
     Dosage: 1694.23 MG OTHER INTRAVENOUS NOS
     Route: 042
     Dates: start: 20011212, end: 20011212

REACTIONS (9)
  - ACINETOBACTER INFECTION [None]
  - BACTERAEMIA [None]
  - BLOOD CULTURE POSITIVE [None]
  - CATHETER RELATED INFECTION [None]
  - HAEMOGLOBIN DECREASED [None]
  - LEUKOCYTOSIS [None]
  - NEUTROPHIL COUNT INCREASED [None]
  - PLATELET COUNT DECREASED [None]
  - SEPSIS [None]
